FAERS Safety Report 10796551 (Version 1)
Quarter: 2015Q1

REPORT INFORMATION
  Report Type: Report from Study
  Country: US (occurrence: US)
  Receive Date: 20150216
  Receipt Date: 20150216
  Transmission Date: 20150721
  Serious: Yes (Hospitalization)
  Sender: FDA-Public Use
  Company Number: US-ABBVIE-13P-163-1144450-00

PATIENT
  Age: 41 Year
  Sex: Female
  Weight: 118 kg

DRUGS (9)
  1. PREDNISONE. [Concomitant]
     Active Substance: PREDNISONE
     Indication: PRODUCT USED FOR UNKNOWN INDICATION
     Route: 048
  2. PREDNISONE. [Concomitant]
     Active Substance: PREDNISONE
  3. PROMETHAZINE [Concomitant]
     Active Substance: PROMETHAZINE\PROMETHAZINE HYDROCHLORIDE
     Indication: NAUSEA
     Dosage: ONCE OR TWICE A DAY
     Route: 048
  4. PROTONIX [Concomitant]
     Active Substance: PANTOPRAZOLE SODIUM
     Indication: ABDOMINAL DISTENSION
     Dosage: ONCE OR TWICE PER WEEK
     Route: 048
  5. HUMIRA [Suspect]
     Active Substance: ADALIMUMAB
     Indication: COLITIS ULCERATIVE
     Route: 058
     Dates: start: 20130703
  6. ASACOL [Concomitant]
     Active Substance: MESALAMINE
     Indication: PRODUCT USED FOR UNKNOWN INDICATION
     Route: 048
  7. REMICADE [Concomitant]
     Active Substance: INFLIXIMAB
     Indication: PRODUCT USED FOR UNKNOWN INDICATION
     Route: 042
  8. LIALDA [Concomitant]
     Active Substance: MESALAMINE
     Indication: COLON CANCER
     Route: 048
  9. LIALDA [Concomitant]
     Active Substance: MESALAMINE
     Indication: PROPHYLAXIS

REACTIONS (7)
  - Drug ineffective [Not Recovered/Not Resolved]
  - Dysphonia [Not Recovered/Not Resolved]
  - Diarrhoea [Unknown]
  - Nausea [Unknown]
  - Abdominal pain [Unknown]
  - Vomiting [Unknown]
  - Dehydration [Unknown]

NARRATIVE: CASE EVENT DATE: 20130703
